FAERS Safety Report 18343678 (Version 1)
Quarter: 2020Q4

REPORT INFORMATION
  Report Type: Spontaneous
  Country: US (occurrence: US)
  Receive Date: 20201005
  Receipt Date: 20201005
  Transmission Date: 20210114
  Serious: No
  Sender: FDA-Public Use
  Company Number: US-PFIZER INC-2020371535

PATIENT
  Age: 65 Year
  Sex: Female
  Weight: 62.14 kg

DRUGS (1)
  1. ESTROGENS CONJUGATED [Suspect]
     Active Substance: ESTROGENS, CONJUGATED
     Dosage: UNK (DOSE WAS .5)
     Dates: end: 20200903

REACTIONS (1)
  - Metrorrhagia [Unknown]
